FAERS Safety Report 5819781-5 (Version None)
Quarter: 2008Q3

REPORT INFORMATION
  Report Type: 
  Country: None (occurrence: None)
  Receive Date: 20080723
  Receipt Date: 20080711
  Transmission Date: 20090109
  Serious: Yes (Other)
  Sender: FDA-Public Use
  Company Number: US-PFIZER INC-2008059385

PATIENT
  Sex: Female
  Weight: 62.727 kg

DRUGS (9)
  1. CHANTIX [Suspect]
     Indication: SMOKING CESSATION THERAPY
     Route: 048
     Dates: start: 20080601, end: 20080601
  2. APIUM GRAVEOLENS [Suspect]
     Indication: SEDATION
  3. ANTI-ASTHMATICS [Concomitant]
     Indication: ASTHMA
  4. OTHER HYPNOTICS AND SEDATIVES [Concomitant]
  5. VITAMIN B [Concomitant]
  6. ASCORBIC ACID [Concomitant]
  7. CALCIUM [Concomitant]
  8. OSTEO BI-FLEX [Concomitant]
  9. FISH OIL [Concomitant]

REACTIONS (2)
  - ASTHMA [None]
  - THROAT TIGHTNESS [None]
